FAERS Safety Report 21442164 (Version 1)
Quarter: 2022Q4

REPORT INFORMATION
  Report Type: Spontaneous
  Country: US (occurrence: US)
  Receive Date: 20221011
  Receipt Date: 20221011
  Transmission Date: 20230112
  Serious: No
  Sender: FDA-Public Use
  Company Number: US-Sprout Pharmaceuticals, Inc.-2022SP000018

PATIENT
  Age: 41 Year
  Sex: Female

DRUGS (3)
  1. ADDYI [Suspect]
     Active Substance: FLIBANSERIN
     Indication: Libido decreased
     Dosage: BOTTLE ONE
     Route: 048
     Dates: start: 2021, end: 2021
  2. ADDYI [Suspect]
     Active Substance: FLIBANSERIN
     Dosage: SECOND BOTTLE
     Route: 048
     Dates: start: 2021
  3. ADDYI [Suspect]
     Active Substance: FLIBANSERIN
     Dosage: THIRD BOTTLE
     Route: 048

REACTIONS (1)
  - Drug ineffective [Not Recovered/Not Resolved]
